FAERS Safety Report 6693984-2 (Version None)
Quarter: 2010Q2

REPORT INFORMATION
  Report Type: 
  Country: None (occurrence: None)
  Receive Date: 20100423
  Receipt Date: 20100414
  Transmission Date: 20101027
  Serious: Yes (Other)
  Sender: FDA-Public Use
  Company Number: CA-JNJFOC-20100405334

PATIENT
  Sex: Male
  Weight: 100 kg

DRUGS (18)
  1. REMICADE [Suspect]
     Indication: COLITIS ULCERATIVE
     Route: 042
  2. REMICADE [Suspect]
     Route: 042
  3. PLAVIX [Concomitant]
     Dosage: DOSE QUESTIONABLE
  4. ASPIRIN [Concomitant]
  5. DILTIAZEM HCL [Concomitant]
  6. DOMPERIDONE [Concomitant]
  7. IMURAN [Concomitant]
  8. HALDOL [Concomitant]
  9. PARIET [Concomitant]
  10. PREDNISONE [Concomitant]
  11. LASIX [Concomitant]
  12. CRESTOR [Concomitant]
  13. HYDROMORPHONE HCL [Concomitant]
  14. COZAAR [Concomitant]
  15. NORVASC [Concomitant]
  16. VENTOLIN [Concomitant]
     Route: 055
  17. DILAUDID [Concomitant]
  18. ALL OTHER THERAPEUTIC PRODUCTS [Concomitant]
     Indication: OSTEOARTHRITIS

REACTIONS (4)
  - ARTHRALGIA [None]
  - CORONARY ARTERY DISEASE [None]
  - DYSPNOEA [None]
  - OSTEOARTHRITIS [None]
